FAERS Safety Report 20713493 (Version 1)
Quarter: 2022Q2

REPORT INFORMATION
  Report Type: Spontaneous
  Country: SA (occurrence: SA)
  Receive Date: 20220415
  Receipt Date: 20220415
  Transmission Date: 20220721
  Serious: Yes (Life-Threatening, Hospitalization, Congenital Anomaly, Other)
  Sender: FDA-Public Use
  Company Number: SA-MLMSERVICE-20220330-3465512-1

PATIENT
  Age: 2 Month
  Sex: Female
  Weight: 1.69 kg

DRUGS (5)
  1. MYCOPHENOLATE MOFETIL [Suspect]
     Active Substance: MYCOPHENOLATE MOFETIL
     Route: 064
  2. PERINDOPRIL [Concomitant]
     Active Substance: PERINDOPRIL
     Route: 064
  3. BISOPROLOL [Concomitant]
     Active Substance: BISOPROLOL
     Route: 064
  4. PREDNISOLONE [Concomitant]
     Active Substance: PREDNISOLONE
     Route: 064
  5. HYDROXYCHLOROQUINE [Concomitant]
     Active Substance: HYDROXYCHLOROQUINE
     Route: 064

REACTIONS (18)
  - Dysmorphism [Unknown]
  - Teratogenicity [Unknown]
  - Microtia [Unknown]
  - Ventricular septal defect [Unknown]
  - Hypertelorism [Unknown]
  - Hydronephrosis [Unknown]
  - Patent ductus arteriosus [Recovered/Resolved]
  - Kidney malformation [Unknown]
  - Nasal disorder [Unknown]
  - Respiration abnormal [Unknown]
  - Low birth weight baby [Unknown]
  - Bradycardia [Unknown]
  - Multiple congenital abnormalities [Unknown]
  - Cleft lip and palate [Unknown]
  - Micrognathia [Unknown]
  - Coloboma [Unknown]
  - Neonatal hypoxia [Recovering/Resolving]
  - Foetal exposure during pregnancy [Unknown]
